FAERS Safety Report 7007771-9 (Version None)
Quarter: 2010Q3

REPORT INFORMATION
  Report Type: 
  Country: None (occurrence: None)
  Receive Date: 20100922
  Receipt Date: 20100913
  Transmission Date: 20110219
  Serious: Yes (Hospitalization)
  Sender: FDA-Public Use
  Company Number: US-ALEXION-A201000887

PATIENT
  Sex: Male

DRUGS (5)
  1. SOLIRIS [Suspect]
     Indication: PAROXYSMAL NOCTURNAL HAEMOGLOBINURIA
     Dosage: REGULAR DOSE, Q2WK
     Route: 042
  2. NORVASC [Concomitant]
  3. PREDNISONE [Concomitant]
  4. PRILOSEC [Concomitant]
  5. FLOMAX [Concomitant]

REACTIONS (3)
  - CELLULITIS [None]
  - FUNGAL INFECTION [None]
  - HAEMOGLOBIN DECREASED [None]
